FAERS Safety Report 7943832-5 (Version None)
Quarter: 2011Q4

REPORT INFORMATION
  Report Type: 
  Country: None (occurrence: None)
  Receive Date: 20111128
  Receipt Date: 20111122
  Transmission Date: 20120403
  Serious: Yes (Hospitalization)
  Sender: FDA-Public Use
  Company Number: CA-ROCHE-796947

PATIENT
  Sex: Female
  Weight: 81.72 kg

DRUGS (18)
  1. MEDROL [Concomitant]
  2. INSULIN [Concomitant]
  3. METHOTREXATE [Concomitant]
     Dosage: DOSE FORM : PILLS
  4. CRESTOR [Concomitant]
  5. OXYCET [Concomitant]
     Indication: PAIN
  6. COZAAR [Concomitant]
     Indication: BLOOD PRESSURE
  7. METRONIDAZOLE [Concomitant]
     Indication: ANTIBIOTIC THERAPY
     Dosage: DOSE : 14 PILLS
  8. ACETAMINOFEN [Concomitant]
     Route: 048
  9. VITAMIN D [Concomitant]
  10. MABTHERA [Suspect]
     Indication: RHEUMATOID ARTHRITIS
     Route: 042
     Dates: start: 20091126, end: 20100729
  11. MORPHINE [Concomitant]
     Indication: PAIN
  12. DIPHENHYDRAMINE HCL [Concomitant]
     Route: 048
  13. ADALAT [Concomitant]
     Indication: BLOOD PRESSURE
  14. PREVACID [Concomitant]
  15. SEPTRA DS [Concomitant]
     Dosage: DRUG NAME MENTIONED AS CEPTRA DS, THERAPY DATES ; FOR 2 YEARS
  16. CALCIUM CARBONATE [Concomitant]
  17. FOLIC ACID [Concomitant]
  18. METHYLPREDNISOLONE [Concomitant]
     Route: 042

REACTIONS (2)
  - INTESTINAL OBSTRUCTION [None]
  - ENTERITIS INFECTIOUS [None]
